FAERS Safety Report 21618121 (Version 3)
Quarter: 2022Q4

REPORT INFORMATION
  Report Type: Report from Study
  Country: EG (occurrence: EG)
  Receive Date: 20221119
  Receipt Date: 20221215
  Transmission Date: 20230113
  Serious: Yes (Other)
  Sender: FDA-Public Use
  Company Number: EG-002147023-NVSC2022EG254053

PATIENT
  Sex: Female

DRUGS (10)
  1. ENTRESTO [Suspect]
     Active Substance: SACUBITRIL\VALSARTAN
     Indication: Cardiac failure
     Dosage: 50 MG, BID, (STARTED ONE YEAR AGO)
     Route: 048
  2. ENTRESTO [Suspect]
     Active Substance: SACUBITRIL\VALSARTAN
     Dosage: 150 MG (100 MG ONE TABLET IN THE MORNING AND ENTRESTO 50 MG ONE TABLET IN THE EVENING)
     Route: 048
  3. ENTRESTO [Suspect]
     Active Substance: SACUBITRIL\VALSARTAN
     Dosage: 100 MG, BID
     Route: 048
  4. ENTRESTO [Suspect]
     Active Substance: SACUBITRIL\VALSARTAN
     Dosage: 100 MG
     Route: 048
  5. ENTRESTO [Suspect]
     Active Substance: SACUBITRIL\VALSARTAN
     Dosage: 50 MG
     Route: 048
  6. METOPROLOL TARTRATE [Concomitant]
     Active Substance: METOPROLOL TARTRATE
     Indication: Heart rate decreased
     Dosage: UNK UNK, QD
     Route: 048
     Dates: start: 20220202
  7. METOPROLOL TARTRATE [Concomitant]
     Active Substance: METOPROLOL TARTRATE
     Dosage: 0.5 DOSAGE FORM, QD
     Route: 048
  8. ITOPRIDE [Concomitant]
     Active Substance: ITOPRIDE
     Indication: Dyspepsia
     Dosage: UNK UNK, TID, (BEFORE FOOD BY HALF AN HOUR), (STARTED 2 YEARS AGO)
     Route: 048
  9. ITOPRIDE [Concomitant]
     Active Substance: ITOPRIDE
     Indication: Abdominal distension
  10. ITOPRIDE [Concomitant]
     Active Substance: ITOPRIDE
     Indication: Gastrooesophageal reflux disease

REACTIONS (18)
  - Hypotension [Not Recovered/Not Resolved]
  - Fatigue [Not Recovered/Not Resolved]
  - Dyspnoea [Not Recovered/Not Resolved]
  - Palpitations [Not Recovered/Not Resolved]
  - Insomnia [Not Recovered/Not Resolved]
  - Off label use [Not Recovered/Not Resolved]
  - Depression [Not Recovered/Not Resolved]
  - Hyperhidrosis [Not Recovered/Not Resolved]
  - Malaise [Not Recovered/Not Resolved]
  - Movement disorder [Not Recovered/Not Resolved]
  - Pain [Unknown]
  - Neck pain [Not Recovered/Not Resolved]
  - Cardiac hypertrophy [Unknown]
  - Chest discomfort [Unknown]
  - Gastrooesophageal reflux disease [Not Recovered/Not Resolved]
  - Gastroenteritis [Not Recovered/Not Resolved]
  - Prescribed underdose [Unknown]
  - Drug effect less than expected [Unknown]
